FAERS Safety Report 15663455 (Version 1)
Quarter: 2018Q4

REPORT INFORMATION
  Report Type: Spontaneous
  Country: GB (occurrence: IN)
  Receive Date: 20181128
  Receipt Date: 20181128
  Transmission Date: 20190205
  Serious: Yes (Death, Hospitalization)
  Sender: FDA-Public Use
  Company Number: GB-EDENBRIDGE PHARMACEUTICALS, LLC-IN-2018EDE000381

PATIENT
  Age: 24 Year
  Sex: Male

DRUGS (3)
  1. DAPSONE. [Concomitant]
     Active Substance: DAPSONE
     Indication: LEPROSY
     Dosage: UNK (2 DOSES)
  2. AZATHIOPRINE. [Suspect]
     Active Substance: AZATHIOPRINE
     Indication: LEPROSY
     Dosage: 50 MG, UNK
  3. PREDNISOLONE SODIUM PHOSPHATE. [Suspect]
     Active Substance: PREDNISOLONE SODIUM PHOSPHATE
     Indication: LEPROSY
     Dosage: 40 MG, QD
     Route: 048

REACTIONS (2)
  - Viral infection [Fatal]
  - Typhoid fever [Fatal]
